FAERS Safety Report 17198882 (Version 1)
Quarter: 2019Q4

REPORT INFORMATION
  Report Type: Spontaneous
  Country: SG (occurrence: SG)
  Receive Date: 20191225
  Receipt Date: 20191225
  Transmission Date: 20200122
  Serious: Yes (Hospitalization)
  Sender: FDA-Public Use
  Company Number: NVSC2019SG077936

PATIENT

DRUGS (4)
  1. VOLTAREN [Suspect]
     Active Substance: DICLOFENAC SODIUM
     Indication: ANALGESIC THERAPY
     Dosage: 50 MG, TID
     Route: 054
     Dates: start: 20190731
  2. ARCOXIA [Suspect]
     Active Substance: ETORICOXIB
     Dosage: 120 MG, QD
     Route: 048
     Dates: start: 20190801
  3. VOLTAREN [Suspect]
     Active Substance: DICLOFENAC SODIUM
     Dosage: 50 MG, TID
     Route: 054
     Dates: start: 20190801
  4. ARCOXIA [Suspect]
     Active Substance: ETORICOXIB
     Indication: ANALGESIC THERAPY
     Dosage: 120 MG, QD
     Route: 048
     Dates: start: 20190731

REACTIONS (1)
  - Eye swelling [Recovered/Resolved]

NARRATIVE: CASE EVENT DATE: 20190731
